FAERS Safety Report 8499052-1 (Version None)
Quarter: 2012Q3

REPORT INFORMATION
  Report Type: 
  Country: None (occurrence: None)
  Receive Date: 20120710
  Receipt Date: 20120627
  Transmission Date: 20120928
  Serious: Yes (Other)
  Sender: FDA-Public Use
  Company Number: JP-MSD-2012SP035023

PATIENT

DRUGS (5)
  1. PEGINTERFERON ALFA-2B [Suspect]
     Indication: HEPATITIS C
     Dosage: 1.5 A?G/KG, UNKNOWN
     Route: 058
     Dates: start: 20120605, end: 20120609
  2. REBETOL [Suspect]
     Indication: HEPATITIS C
     Dosage: 600 MG, QD
     Route: 048
     Dates: start: 20120605, end: 20120609
  3. SELBEX [Concomitant]
     Indication: PROPHYLAXIS
     Dosage: UPDATE (27JUN2012); FORMULATION: POR
     Route: 048
     Dates: start: 20120609
  4. ANTIVIRAL (UNSPECIFIED) [Suspect]
     Indication: HEPATITIS C
     Dosage: 2250 MG, QD
     Route: 048
     Dates: start: 20120605, end: 20120609
  5. CANDESARTAN CILEXETIL [Concomitant]
     Indication: HYPERTENSION
     Dosage: UPDATE (27JUN2012); FORMULATION: POR
     Route: 048

REACTIONS (3)
  - ERYTHEMA [None]
  - RASH [None]
  - PARAESTHESIA ORAL [None]
